FAERS Safety Report 4788352-4 (Version None)
Quarter: 2005Q4

REPORT INFORMATION
  Report Type: 
  Country: None (occurrence: None)
  Receive Date: 20051003
  Receipt Date: 20050923
  Transmission Date: 20060501
  Serious: Yes (Hospitalization)
  Sender: FDA-Public Use
  Company Number: 217398

PATIENT
  Age: 46 Year
  Sex: Male
  Weight: 83.3 kg

DRUGS (14)
  1. AVASTIN [Suspect]
     Indication: GLIOBLASTOMA MULTIFORME
     Dosage: 10 MG/KG,
     Dates: start: 20050728, end: 20050811
  2. IRINOTECAN HCL [Suspect]
     Indication: GLIOBLASTOMA MULTIFORME
     Dosage: 125 MG/M2
     Dates: start: 20050728
  3. KEPPRA [Concomitant]
  4. SALT TABLETS (SODIUM CHLORIDE) [Concomitant]
  5. PREVACID [Concomitant]
  6. MELATONIN (LANSOPRAZOLE) [Concomitant]
  7. MULTIVITAMIN WITH IRON (MULTIVITAMINS NOS, IRON NOS) [Concomitant]
  8. BOSWELLIA (INDIAN FRANKINCENSE) [Concomitant]
  9. VITAMIN D (CHOLECALCIFEROL) [Concomitant]
  10. CORIOLUS VERSICOLOR VPS (MUSHROOMS) [Concomitant]
  11. GINSENG (GINSENG) [Concomitant]
  12. BACLOFEN [Concomitant]
  13. DECADRON [Concomitant]
  14. ZOFRAN [Concomitant]

REACTIONS (5)
  - BLOOD SODIUM DECREASED [None]
  - CONVULSION [None]
  - DIZZINESS [None]
  - FATIGUE [None]
  - NAUSEA [None]
